FAERS Safety Report 8152103 (Version 2)
Quarter: 2013Q2

REPORT INFORMATION
  Report Type: Spontaneous
  Country: US (occurrence: US)
  Receive Date: 20110922
  Receipt Date: 20130520
  Transmission Date: 20140414
  Serious: Yes (Other)
  Sender: FDA-Public Use
  Company Number: US-ASTRAZENECA-2011SE12718

PATIENT
  Age: 41 Year
  Sex: Female
  Weight: 98 kg

DRUGS (11)
  1. SEROQUEL [Suspect]
     Route: 048
     Dates: start: 20080717
  2. SEROQUEL [Suspect]
     Route: 048
     Dates: start: 20080717
  3. CYMBALTA [Concomitant]
     Dates: start: 20080717, end: 20090131
  4. CYMBALTA [Concomitant]
     Dates: start: 20080717
  5. TRAZADONE [Concomitant]
     Dates: start: 20080717
  6. ATIVAN [Concomitant]
     Dates: start: 20080717
  7. ATIVAN [Concomitant]
     Dates: start: 20080717
  8. TRAMADOL [Concomitant]
     Dates: start: 20081111
  9. TRAMADOL [Concomitant]
     Dates: start: 20080717
  10. COUMADIN [Concomitant]
     Dosage: ONE AND HALF TABLET MONDAY AND THRUSDAY,1 TABLET DAILY TUESDAY,WEDNESDAY,FRIDAY,SATURDAY,SUNDAY
     Dates: start: 20080717, end: 20080717
  11. ADIPEX [Concomitant]
     Dates: start: 20090130

REACTIONS (3)
  - Pancreatitis [Unknown]
  - Diabetic coma [Unknown]
  - Type 2 diabetes mellitus [Unknown]
